FAERS Safety Report 6979082-9 (Version None)
Quarter: 2010Q3

REPORT INFORMATION
  Report Type: 
  Country: None (occurrence: None)
  Receive Date: 20100913
  Receipt Date: 20100831
  Transmission Date: 20110219
  Serious: Yes (Hospitalization)
  Sender: FDA-Public Use
  Company Number: PHHY2010FR58209

PATIENT
  Age: 70 Year
  Sex: Female

DRUGS (2)
  1. EXELON [Suspect]
     Dosage: 4.6 MG DAILY
     Route: 062
  2. EXELON [Suspect]
     Dosage: 9.5 MG DAILY
     Route: 062

REACTIONS (2)
  - DIZZINESS [None]
  - SENSE OF OPPRESSION [None]
